FAERS Safety Report 9525023 (Version 1)
Quarter: 2013Q1

REPORT INFORMATION
  Report Type: Spontaneous
  Country: US (occurrence: None)
  Receive Date: 20130314
  Receipt Date: 20130314
  Transmission Date: 20140127
  Serious: No
  Sender: FDA-Public Use
  Company Number: 1301USA004948

PATIENT
  Age: 51 Year
  Sex: Male

DRUGS (4)
  1. PEG-INTRON [Suspect]
     Indication: HEPATITIS C
     Dosage: UNK?
     Dates: start: 20121110
  2. RIBAVIRIN [Suspect]
     Indication: HEPATITIS C
     Dosage: 3 DF, BID, ORAL
     Route: 048
     Dates: start: 20121110
  3. VICTRELIS [Suspect]
     Indication: HEPATITIS C
     Dosage: UNK, ORAL
     Route: 048
     Dates: start: 20121208
  4. CYMBALTA (DULOXETINE HYDROCHRLORIDE) [Concomitant]

REACTIONS (11)
  - Tooth abscess [None]
  - Tooth loss [None]
  - Back pain [None]
  - Anaemia [None]
  - Anger [None]
  - Bacterial infection [None]
  - Weight decreased [None]
  - Irritability [None]
  - Haemoglobin decreased [None]
  - Anaemia [None]
  - Depression [None]
